FAERS Safety Report 10618692 (Version 2)
Quarter: 2014Q4

REPORT INFORMATION
  Report Type: Spontaneous
  Country: BR (occurrence: None)
  Receive Date: 20141125
  Receipt Date: 20141202
  Transmission Date: 20150529
  Serious: Yes (Other)
  Sender: FDA-Public Use
  Company Number: BR-017761

PATIENT
  Age: 45 Year
  Sex: Male

DRUGS (4)
  1. DURATESTON [Concomitant]
     Active Substance: TESTOSTERONE
  2. DDAVP [Suspect]
     Active Substance: DESMOPRESSIN ACETATE
     Indication: DIABETES INSIPIDUS
     Route: 045
     Dates: start: 2004
  3. DEPOSTERON [Concomitant]
  4. PURAN [Concomitant]
     Active Substance: LEVOTHYROXINE SODIUM

REACTIONS (7)
  - Skin discolouration [None]
  - Dermatitis allergic [None]
  - Vomiting [None]
  - Diarrhoea [None]
  - Hyponatraemia [None]
  - Blood testosterone decreased [None]
  - Blood pressure decreased [None]

NARRATIVE: CASE EVENT DATE: 2002
